FAERS Safety Report 10413452 (Version 3)
Quarter: 2014Q3

REPORT INFORMATION
  Report Type: Spontaneous
  Country: DE (occurrence: DE)
  Receive Date: 20140827
  Receipt Date: 20140911
  Transmission Date: 20150326
  Serious: Yes (Disabling)
  Sender: FDA-Public Use
  Company Number: DE-GLAXOSMITHKLINE-D0085247A

PATIENT
  Age: 67 Year
  Sex: Female
  Weight: 64 kg

DRUGS (4)
  1. NEBIVOLOL [Concomitant]
     Active Substance: NEBIVOLOL
     Dosage: 5MG IN THE MORNING
     Route: 065
  2. SPIRIVA RESPIMAT [Concomitant]
     Active Substance: TIOTROPIUM BROMIDE
     Indication: CHRONIC OBSTRUCTIVE PULMONARY DISEASE
     Dosage: 2PUFF IN THE MORNING
     Route: 055
     Dates: start: 2004
  3. GYNOKADIN [Concomitant]
     Active Substance: ESTRADIOL
     Route: 048
  4. FLUTIDE FORTE [Suspect]
     Active Substance: FLUTICASONE PROPIONATE
     Indication: CHRONIC OBSTRUCTIVE PULMONARY DISEASE
     Dosage: 500MCG TWICE PER DAY
     Route: 055
     Dates: start: 2004

REACTIONS (4)
  - Bile duct cancer [Recovered/Resolved]
  - Goitre [Unknown]
  - Adrenal insufficiency [Not Recovered/Not Resolved]
  - Pneumonia [Unknown]

NARRATIVE: CASE EVENT DATE: 2011
